FAERS Safety Report 19971548 (Version 2)
Quarter: 2021Q4

REPORT INFORMATION
  Report Type: Spontaneous
  Country: CN (occurrence: CN)
  Receive Date: 20211019
  Receipt Date: 20211123
  Transmission Date: 20220303
  Serious: Yes (Other)
  Sender: FDA-Public Use
  Company Number: CN-009507513-2110CHN004211

PATIENT
  Age: 29 Year
  Sex: Male
  Weight: 52 kg

DRUGS (3)
  1. KEYTRUDA [Suspect]
     Active Substance: PEMBROLIZUMAB
     Indication: Pneumonia
     Dosage: 200 MG, ONCE, D1
     Route: 041
     Dates: start: 20210920, end: 20210920
  2. CARBOPLATIN [Suspect]
     Active Substance: CARBOPLATIN
     Dosage: 0.6 G, D1
     Dates: start: 20210920
  3. PEMETREXED [Suspect]
     Active Substance: PEMETREXED
     Dosage: 0.8 G D1
     Dates: start: 20210920

REACTIONS (2)
  - Cholestatic liver injury [Recovering/Resolving]
  - Product use in unapproved indication [Unknown]

NARRATIVE: CASE EVENT DATE: 20210920
